FAERS Safety Report 21479697 (Version 6)
Quarter: 2023Q1

REPORT INFORMATION
  Report Type: Spontaneous
  Country: US (occurrence: US)
  Receive Date: 20221019
  Receipt Date: 20230315
  Transmission Date: 20230418
  Serious: No
  Sender: FDA-Public Use
  Company Number: US-PFIZER INC-PV202200021546

PATIENT
  Age: 67 Year
  Sex: Female

DRUGS (1)
  1. IBRANCE [Suspect]
     Active Substance: PALBOCICLIB
     Dosage: 100 MG

REACTIONS (13)
  - Cancer pain [Unknown]
  - Product prescribing issue [Unknown]
  - Fatigue [Unknown]
  - Grip strength decreased [Unknown]
  - Peripheral swelling [Unknown]
  - COVID-19 [Recovered/Resolved]
  - Alopecia [Unknown]
  - Depressed mood [Unknown]
  - Fall [Unknown]
  - Balance disorder [Unknown]
  - Hypertension [Unknown]
  - Pain [Unknown]
  - Nervousness [Unknown]
